FAERS Safety Report 9737095 (Version 1)
Quarter: 2013Q4

REPORT INFORMATION
  Report Type: Spontaneous
  Country: US (occurrence: US)
  Receive Date: 20131206
  Receipt Date: 20131206
  Transmission Date: 20140711
  Serious: Yes (Other)
  Sender: FDA-Public Use
  Company Number: US-TEVA-448753USA

PATIENT
  Age: 62 Year
  Sex: Female

DRUGS (6)
  1. DIAZEPAM [Suspect]
     Indication: CONVULSION
  2. DIAZEPAM [Suspect]
     Indication: BIPOLAR DISORDER
  3. QUETIAPINE FUMARATE [Suspect]
  4. GABAPENTIN [Suspect]
  5. AMLODIPINE [Suspect]
  6. LEVOTHYROXINE SODIUM [Concomitant]

REACTIONS (5)
  - Convulsion [Unknown]
  - Road traffic accident [Unknown]
  - Bladder disorder [Unknown]
  - Amnesia [Unknown]
  - Laceration [Unknown]
